APPROVED DRUG PRODUCT: MONTELUKAST SODIUM
Active Ingredient: MONTELUKAST SODIUM
Strength: EQ 4MG BASE
Dosage Form/Route: TABLET, CHEWABLE;ORAL
Application: A203795 | Product #001
Applicant: JUBILANT GENERICS LTD
Approved: Feb 27, 2015 | RLD: No | RS: No | Type: DISCN